FAERS Safety Report 4358521-6 (Version None)
Quarter: 2004Q2

REPORT INFORMATION
  Report Type: 
  Country: None (occurrence: None)
  Receive Date: 20040514
  Receipt Date: 20040506
  Transmission Date: 20050107
  Serious: Yes (Hospitalization)
  Sender: FDA-Public Use
  Company Number: IT-GLAXOSMITHKLINE-B0332294A

PATIENT
  Age: 60 Year
  Sex: Female

DRUGS (2)
  1. ZINNAT [Suspect]
     Dosage: 1U PER DAY
     Dates: start: 20040505, end: 20040505
  2. ACETAMINOPHEN [Concomitant]
     Dosage: 1U THREE TIMES PER DAY
     Route: 048
     Dates: start: 20040504, end: 20040505

REACTIONS (2)
  - ASTHMA [None]
  - ERYTHEMA [None]
